FAERS Safety Report 23175040 (Version 2)
Quarter: 2023Q4

REPORT INFORMATION
  Report Type: Spontaneous
  Country: US (occurrence: US)
  Receive Date: 20231112
  Receipt Date: 20231116
  Transmission Date: 20240110
  Serious: No
  Sender: FDA-Public Use
  Company Number: US-SANDOZ-SDZ2023US052522

PATIENT
  Sex: Female

DRUGS (1)
  1. TRIAMCINOLONE [Suspect]
     Active Substance: TRIAMCINOLONE
     Indication: Product used for unknown indication
     Dosage: UNK
     Route: 065

REACTIONS (6)
  - Rash [Unknown]
  - Psoriasis [Unknown]
  - Swelling face [Unknown]
  - Skin burning sensation [Unknown]
  - Discomfort [Unknown]
  - Drug resistance [Unknown]
